FAERS Safety Report 9101678 (Version 1)
Quarter: 2013Q1

REPORT INFORMATION
  Report Type: Spontaneous
  Country: NO (occurrence: NO)
  Receive Date: 20130218
  Receipt Date: 20130218
  Transmission Date: 20140127
  Serious: Yes (Hospitalization)
  Sender: FDA-Public Use
  Company Number: NO-ASTRAZENECA-2013SE07261

PATIENT
  Age: 23521 Day
  Sex: Male

DRUGS (7)
  1. VIMOVO [Suspect]
     Indication: OSTEOARTHRITIS
     Dosage: 500/20 MG TWO TIMES A DAY
     Route: 048
     Dates: start: 20121206, end: 20121209
  2. VIMOVO [Suspect]
     Indication: OSTEOARTHRITIS
     Route: 048
  3. PARACET [Concomitant]
  4. TRAMADOL [Concomitant]
  5. FURIX [Concomitant]
  6. IMOVANE [Concomitant]
  7. PARALGIN FORTE [Concomitant]

REACTIONS (6)
  - Gait disturbance [Recovered/Resolved]
  - Bladder disorder [Recovered/Resolved]
  - Speech disorder [Recovered/Resolved]
  - Transient ischaemic attack [Unknown]
  - Paraesthesia [Recovered/Resolved]
  - Dizziness [Recovered/Resolved]
